FAERS Safety Report 14681827 (Version 1)
Quarter: 2018Q1

REPORT INFORMATION
  Report Type: Spontaneous
  Country: NO (occurrence: NO)
  Receive Date: 20180326
  Receipt Date: 20180326
  Transmission Date: 20180509
  Serious: Yes (Other)
  Sender: FDA-Public Use
  Company Number: NO-PFIZER INC-2018120857

PATIENT
  Age: 22 Year
  Sex: Male

DRUGS (10)
  1. SOBRIL [Suspect]
     Active Substance: OXAZEPAM
     Dosage: UNK
  2. RITALIN [Suspect]
     Active Substance: METHYLPHENIDATE HYDROCHLORIDE
     Dosage: 10 MG, UNK
     Route: 048
  3. EFEXOR DEPOT [Suspect]
     Active Substance: VENLAFAXINE HYDROCHLORIDE
     Dosage: UNK
  4. CIPRALEX [Suspect]
     Active Substance: ESCITALOPRAM OXALATE
     Dosage: 10 MG, UNK
     Route: 048
  5. IMOVANE [Suspect]
     Active Substance: ZOPICLONE
     Dosage: 7.5 MG, UNK
     Route: 048
  6. VALIUM [Suspect]
     Active Substance: DIAZEPAM
     Dosage: 5 MG, UNK
     Route: 048
  7. ROHYPNOL [Suspect]
     Active Substance: FLUNITRAZEPAM
     Dosage: UNK
     Route: 065
  8. VALLERGAN [Suspect]
     Active Substance: TRIMEPRAZINE
     Dosage: 10 MG, UNK
     Route: 048
  9. STESOLID [Suspect]
     Active Substance: DIAZEPAM
     Dosage: 5 MG, UNK
     Route: 048
  10. ATARAX [Suspect]
     Active Substance: HYDROXYZINE HYDROCHLORIDE
     Dosage: 25 MG, UNK
     Route: 048

REACTIONS (2)
  - Medication error [Unknown]
  - Drug dependence [Unknown]
